FAERS Safety Report 23670663 (Version 8)
Quarter: 2025Q4

REPORT INFORMATION
  Report Type: Report from Study
  Country: US (occurrence: US)
  Receive Date: 20240326
  Receipt Date: 20251006
  Transmission Date: 20260118
  Serious: Yes (Other)
  Sender: BOEHRINGER INGELHEIM
  Company Number: US-BoehringerIngelheim-2024-BI-008021

PATIENT
  Age: 77 Year
  Sex: Female

DRUGS (4)
  1. OFEV [Suspect]
     Active Substance: NINTEDANIB
     Indication: Idiopathic pulmonary fibrosis
     Dates: start: 20231128
  2. OFEV [Suspect]
     Active Substance: NINTEDANIB
     Dates: start: 202403
  3. OFEV [Suspect]
     Active Substance: NINTEDANIB
     Dates: start: 202501
  4. METFORMIN [Concomitant]
     Active Substance: METFORMIN HYDROCHLORIDE
     Indication: Type 2 diabetes mellitus

REACTIONS (13)
  - Pulmonary fibrosis [Not Recovered/Not Resolved]
  - Diarrhoea [Recovered/Resolved]
  - Cystitis [Recovering/Resolving]
  - Diarrhoea [Not Recovered/Not Resolved]
  - Abdominal pain upper [Not Recovered/Not Resolved]
  - Abdominal pain upper [Not Recovered/Not Resolved]
  - Vitamin B12 decreased [Unknown]
  - Visual impairment [Unknown]
  - Cough [Not Recovered/Not Resolved]
  - Fatigue [Not Recovered/Not Resolved]
  - Dyspnoea exertional [Not Recovered/Not Resolved]
  - Oxygen saturation decreased [Recovering/Resolving]
  - Drug intolerance [Recovered/Resolved]

NARRATIVE: CASE EVENT DATE: 20231201
